FAERS Safety Report 25785210 (Version 2)
Quarter: 2025Q3

REPORT INFORMATION
  Report Type: Spontaneous
  Country: GB (occurrence: GB)
  Receive Date: 20250910
  Receipt Date: 20250925
  Transmission Date: 20251020
  Serious: Yes (Hospitalization)
  Sender: TEVA
  Company Number: GB-TEVA-VS-3369630

PATIENT
  Age: 44 Year
  Sex: Female

DRUGS (4)
  1. PREGABALIN [Suspect]
     Active Substance: PREGABALIN
     Indication: Drug abuse
     Route: 065
  2. LEVAMISOLE [Suspect]
     Active Substance: LEVAMISOLE
     Indication: Drug abuse
     Route: 065
  3. NATALIZUMAB [Concomitant]
     Active Substance: NATALIZUMAB
     Indication: Multiple sclerosis
     Route: 065
  4. TRAMADOL [Suspect]
     Active Substance: TRAMADOL
     Indication: Drug abuse
     Route: 065

REACTIONS (3)
  - Autoimmune disorder [Unknown]
  - Adulterated product [Unknown]
  - Drug abuse [Unknown]
